FAERS Safety Report 9695981 (Version 1)
Quarter: 2013Q4

REPORT INFORMATION
  Report Type: Spontaneous
  Country: US (occurrence: None)
  Receive Date: 20131115
  Receipt Date: 20131115
  Transmission Date: 20140711
  Serious: Yes (Life-Threatening)
  Sender: FDA-Public Use
  Company Number: 2013P1020861

PATIENT
  Age: 55 Year
  Sex: Male
  Weight: 100 kg

DRUGS (2)
  1. AMLODIPINE [Suspect]
  2. LABETALOL [Suspect]

REACTIONS (6)
  - Mental status changes [None]
  - Hypotension [None]
  - Renal failure acute [None]
  - Overdose [None]
  - Cardiovascular disorder [None]
  - Toxicity to various agents [None]
